FAERS Safety Report 8356435-8 (Version None)
Quarter: 2012Q2

REPORT INFORMATION
  Report Type: 
  Country: None (occurrence: None)
  Receive Date: 20120511
  Receipt Date: 20120511
  Transmission Date: 20120825
  Serious: Yes (Other)
  Sender: FDA-Public Use
  Company Number: None

PATIENT
  Age: 40 Year
  Sex: Female
  Weight: 108.8633 kg

DRUGS (5)
  1. VENLAFAXINE HCL EXTENDED-RELEASE [Concomitant]
  2. ZONISAMIDE [Concomitant]
  3. LATUDA [Suspect]
     Indication: MAJOR DEPRESSION
     Dates: start: 20120228, end: 20120301
  4. LATUDA [Suspect]
     Indication: ANXIETY
     Dates: start: 20120228, end: 20120301
  5. SEROQUEL [Concomitant]

REACTIONS (7)
  - DYSKINESIA [None]
  - ANXIETY [None]
  - FEELING ABNORMAL [None]
  - MOVEMENT DISORDER [None]
  - MUSCLE TWITCHING [None]
  - MYOCLONUS [None]
  - MENTAL IMPAIRMENT [None]
